FAERS Safety Report 9690295 (Version 1)
Quarter: 2013Q4

REPORT INFORMATION
  Report Type: Spontaneous
  Country: GB (occurrence: None)
  Receive Date: 20131113
  Receipt Date: 20131113
  Transmission Date: 20140711
  Serious: Yes (Hospitalization)
  Sender: FDA-Public Use
  Company Number: 2000537

PATIENT
  Age: 86 Year
  Sex: Male

DRUGS (30)
  1. (GENTAMICIN SULFATE) [Suspect]
     Indication: ENDOCARDITIS
     Dosage: UNKNOWN, UNKNOWN, INTRAVENOUS (NOT OTHERWISE SPECIFIED)
     Route: 042
     Dates: start: 20130926, end: 20131001
  2. (DIGOXIN) [Concomitant]
  3. (AMOXICILLIN) [Concomitant]
  4. (FUROSEMIDE) [Concomitant]
  5. NICOTINAMIDE W/RIBOFLAVIN/THIAMINE) [Concomitant]
  6. (PARACETAMOL) [Concomitant]
  7. (MIDAZOLAM) [Concomitant]
  8. (MORPHINE SULFATE) [Concomitant]
  9. (NEFOPAM) [Concomitant]
  10. (SENNA /00142201/) [Concomitant]
  11. (METOCLOPRAMIDE) [Concomitant]
  12. (FINASTERIDE) [Concomitant]
  13. (TINZAPARIN) [Concomitant]
  14. (FORTISIP) [Concomitant]
  15. (POTASSIUM CHLORIDE) [Concomitant]
  16. (SODIUM ACID PHOSPHATE /00706601/) [Concomitant]
  17. (SALBUTAMOL) [Concomitant]
  18. (SODIUM ACID PHOSPHATE /00706601) [Concomitant]
  19. (GABAPENTIN) [Concomitant]
  20. (PIPERACILLIN SODIUM W/TAZOBACTAM SODIUM) [Concomitant]
  21. HYOSCINE HYDROBROMIDE) [Concomitant]
  22. (MORPHINE) [Concomitant]
  23. (SODIUM CHLORIDE) [Concomitant]
  24. (AMOXICILLIN W/CLAVULANATE POTASSIUM) [Concomitant]
  25. (MORPHINE SULFATE) [Concomitant]
  26. MACROGOL 3350) [Concomitant]
  27. (DOCUSATE) [Concomitant]
  28. (CODEINE PHOSPHATE) [Concomitant]
  29. (DUTASTERIDE) [Concomitant]
  30. (ENSURE PLUS) [Concomitant]

REACTIONS (1)
  - Renal failure acute [None]
